FAERS Safety Report 5904860-4 (Version None)
Quarter: 2008Q3

REPORT INFORMATION
  Report Type: 
  Country: None (occurrence: None)
  Receive Date: 20080909
  Receipt Date: 20080508
  Transmission Date: 20090109
  Serious: Yes (Hospitalization)
  Sender: FDA-Public Use
  Company Number: 163-20785-08050422

PATIENT
  Age: 51 Year
  Sex: Male

DRUGS (8)
  1. THALOMID [Suspect]
     Indication: MULTIPLE MYELOMA
     Dosage: 200 MG, 1 IN 1 D, ORAL ; 200 MG, 1 IN 1 D, ORAL
     Route: 048
     Dates: start: 20050225, end: 20050601
  2. THALOMID [Suspect]
     Indication: MULTIPLE MYELOMA
     Dosage: 200 MG, 1 IN 1 D, ORAL ; 200 MG, 1 IN 1 D, ORAL
     Route: 048
     Dates: start: 20080320
  3. DEXAMETHASONE TAB [Concomitant]
  4. DOCUSATE (DOCUSATE) [Concomitant]
  5. ENOXAPARIN SODIUM [Concomitant]
  6. KETAMINE HCL [Concomitant]
  7. METHADONE HCL [Concomitant]
  8. PREGABALIN (PREGABALIN) [Concomitant]

REACTIONS (1)
  - NEURALGIA [None]
